FAERS Safety Report 8076371-4 (Version None)
Quarter: 2011Q4

REPORT INFORMATION
  Report Type: 
  Country: None (occurrence: None)
  Receive Date: 20111221
  Receipt Date: 20110714
  Transmission Date: 20120403
  Serious: Yes (Other)
  Sender: FDA-Public Use
  Company Number: PHHY2011US59881

PATIENT
  Age: 47 Year
  Sex: Male
  Weight: 101.1 kg

DRUGS (4)
  1. EXJADE [Suspect]
     Indication: CHELATION THERAPY
     Dosage: 2000 MG DAILY, ORAL 2000 MG, QOD, ORAL 04 DF, QD, ORAL
     Route: 048
     Dates: start: 20110323
  2. EXJADE [Suspect]
     Indication: HAEMOCHROMATOSIS
     Dosage: 2000 MG DAILY, ORAL 2000 MG, QOD, ORAL 04 DF, QD, ORAL
     Route: 048
     Dates: start: 20110323
  3. EXJADE [Suspect]
     Indication: CHELATION THERAPY
     Dosage: 2000 MG DAILY, ORAL 2000 MG, QOD, ORAL 04 DF, QD, ORAL
     Route: 048
     Dates: start: 20110101
  4. EXJADE [Suspect]
     Indication: HAEMOCHROMATOSIS
     Dosage: 2000 MG DAILY, ORAL 2000 MG, QOD, ORAL 04 DF, QD, ORAL
     Route: 048
     Dates: start: 20110101

REACTIONS (3)
  - SICKLE CELL ANAEMIA WITH CRISIS [None]
  - ARTHRALGIA [None]
  - PAIN [None]
